FAERS Safety Report 20460822 (Version 4)
Quarter: 2022Q3

REPORT INFORMATION
  Report Type: Spontaneous
  Country: US (occurrence: US)
  Receive Date: 20220211
  Receipt Date: 20220923
  Transmission Date: 20221026
  Serious: No
  Sender: FDA-Public Use
  Company Number: US-ALNYLAM PHARMACEUTICALS, INC.-ALN-2022-000447

PATIENT

DRUGS (2)
  1. GIVLAARI [Suspect]
     Active Substance: GIVOSIRAN SODIUM
     Indication: Porphyria acute
     Dosage: UNK
     Route: 065
     Dates: start: 20210330
  2. HEMATIN [Concomitant]
     Active Substance: HEMATIN
     Indication: Product used for unknown indication
     Route: 065

REACTIONS (4)
  - Oral pain [Recovered/Resolved]
  - Post-acute COVID-19 syndrome [Unknown]
  - Device related infection [Unknown]
  - Walking aid user [Unknown]
